FAERS Safety Report 23096272 (Version 3)
Quarter: 2023Q4

REPORT INFORMATION
  Report Type: Spontaneous
  Country: EC (occurrence: EC)
  Receive Date: 20231023
  Receipt Date: 20231128
  Transmission Date: 20240110
  Serious: Yes (Death, Life-Threatening, Hospitalization, Other)
  Sender: FDA-Public Use
  Company Number: EC-PFIZER INC-PV202300169818

PATIENT
  Age: 2 Year
  Sex: Male
  Weight: 8.6 kg

DRUGS (16)
  1. METHYLPREDNISOLONE [Suspect]
     Active Substance: METHYLPREDNISOLONE
     Indication: Crohn^s disease
     Dosage: UNK
  2. PREDNISONE [Suspect]
     Active Substance: PREDNISONE
     Indication: Crohn^s disease
     Dosage: 5 MG/DAY ADMINISTERED AT 8 AM
     Route: 048
  3. AZATHIOPRINE [Suspect]
     Active Substance: AZATHIOPRINE
     Indication: Crohn^s disease
     Dosage: UNK
  4. MESALAMINE [Concomitant]
     Active Substance: MESALAMINE
     Indication: Crohn^s disease
     Dosage: UNK
  5. METRONIDAZOLE [Concomitant]
     Active Substance: METRONIDAZOLE
     Indication: Intestinal perforation
     Dosage: UNK
     Route: 042
  6. FLUCONAZOLE [Concomitant]
     Active Substance: FLUCONAZOLE
     Indication: Duodenitis
     Dosage: UNK
  7. FLUCONAZOLE [Concomitant]
     Active Substance: FLUCONAZOLE
     Indication: Oesophageal candidiasis
  8. NYSTATIN [Concomitant]
     Active Substance: NYSTATIN
     Indication: Duodenitis
     Dosage: UNK
     Route: 048
  9. NYSTATIN [Concomitant]
     Active Substance: NYSTATIN
     Indication: Oesophageal candidiasis
  10. CLARITHROMYCIN [Concomitant]
     Active Substance: CLARITHROMYCIN
     Indication: Helicobacter infection
     Dosage: UNK
  11. OMEPRAZOLE [Concomitant]
     Active Substance: OMEPRAZOLE
     Indication: Helicobacter infection
     Dosage: UNK
  12. VANCOMYCIN [Concomitant]
     Active Substance: VANCOMYCIN
     Indication: Bacterial infection
     Dosage: UNK
  13. TERBINAFINE [Concomitant]
     Active Substance: TERBINAFINE
     Indication: Fungal infection
     Dosage: UNK
  14. AMIKACIN [Concomitant]
     Active Substance: AMIKACIN
     Dosage: UNK
  15. CEFTRIAXONE [Concomitant]
     Active Substance: CEFTRIAXONE\CEFTRIAXONE SODIUM
     Dosage: UNK
  16. CO-TRIMOXAZOLE STI [Concomitant]
     Dosage: UNK

REACTIONS (3)
  - Histoplasmosis disseminated [Fatal]
  - Condition aggravated [Fatal]
  - Tachycardia [Recovered/Resolved]
